FAERS Safety Report 4395736-5 (Version None)
Quarter: 2004Q3

REPORT INFORMATION
  Report Type: 
  Country: None (occurrence: None)
  Receive Date: 20040708
  Receipt Date: 20040622
  Transmission Date: 20050211
  Serious: Yes (Hospitalization)
  Sender: FDA-Public Use
  Company Number: US-SHR-04-023269

PATIENT
  Age: 40 Year
  Sex: Female
  Weight: 77.1 kg

DRUGS (2)
  1. YASMIN [Suspect]
     Indication: ORAL CONTRACEPTION
     Dosage: 1 TAB (S), 1X/DAY, ORAL; 1 TAB (S), 1X/DAY, ORAL
     Route: 048
     Dates: start: 20030501, end: 20030801
  2. YASMIN [Suspect]
     Indication: ORAL CONTRACEPTION
     Dosage: 1 TAB (S), 1X/DAY, ORAL; 1 TAB (S), 1X/DAY, ORAL
     Route: 048
     Dates: start: 20040208, end: 20040328

REACTIONS (2)
  - COLITIS ULCERATIVE [None]
  - RECTAL HAEMORRHAGE [None]
